FAERS Safety Report 15170565 (Version 1)
Quarter: 2018Q3

REPORT INFORMATION
  Report Type: Spontaneous
  Country: GB (occurrence: GB)
  Receive Date: 20180720
  Receipt Date: 20180720
  Transmission Date: 20181010
  Serious: Yes (Life-Threatening, Hospitalization, Other)
  Sender: FDA-Public Use
  Company Number: GB-TEVA-2018-GB-927103

PATIENT
  Age: 81 Year
  Sex: Male
  Weight: 79 kg

DRUGS (7)
  1. BEZAFIBRATE [Concomitant]
     Active Substance: BEZAFIBRATE
     Dosage: 2 DOSAGE FORMS DAILY;
     Route: 065
     Dates: start: 20171121
  2. COMBODART [Concomitant]
     Active Substance: DUTASTERIDE\TAMSULOSIN
     Dosage: 1 DOSAGE FORMS DAILY;
     Dates: start: 20171121
  3. CO?CARELDOPA [Concomitant]
     Active Substance: CARBIDOPA\LEVODOPA
     Dosage: 3 DOSAGE FORMS DAILY;
     Route: 065
     Dates: start: 20171228
  4. NAPROXEN. [Suspect]
     Active Substance: NAPROXEN
     Route: 065
     Dates: start: 20160416
  5. BISACODYL. [Concomitant]
     Active Substance: BISACODYL
     Dosage: TAKE 1?2 AT NIGHT.
     Route: 065
     Dates: start: 20180119
  6. FELODIPINE. [Concomitant]
     Active Substance: FELODIPINE
     Dosage: 1 DOSAGE FORMS DAILY;
     Route: 065
     Dates: start: 20171121
  7. FYBOGEL [Concomitant]
     Active Substance: PLANTAGO OVATA SEED
     Dosage: 1 DOSAGE FORMS DAILY; 1
     Route: 065
     Dates: start: 20170524

REACTIONS (1)
  - Acute kidney injury [Recovered/Resolved]

NARRATIVE: CASE EVENT DATE: 20160504
